FAERS Safety Report 11933964 (Version 2)
Quarter: 2020Q2

REPORT INFORMATION
  Report Type: Spontaneous
  Country: CA (occurrence: CA)
  Receive Date: 20160121
  Receipt Date: 20200602
  Transmission Date: 20200713
  Serious: Yes (Life-Threatening, Disabling)
  Sender: FDA-Public Use
  Company Number: CA-ROCHE-1697705

PATIENT
  Age: 48 Year
  Sex: Male
  Weight: 61 kg

DRUGS (9)
  1. ZOPICLONE [Concomitant]
     Active Substance: ZOPICLONE
     Route: 065
  2. MAVIK [Concomitant]
     Active Substance: TRANDOLAPRIL
     Route: 065
  3. FRAGMIN [Concomitant]
     Active Substance: DALTEPARIN SODIUM
     Route: 065
  4. FLUOROURACIL. [Concomitant]
     Active Substance: FLUOROURACIL
  5. AVASTIN [Suspect]
     Active Substance: BEVACIZUMAB
     Indication: COLORECTAL CANCER METASTATIC
     Dosage: THERAPY DURATION: 238 DAYS
     Route: 042
  6. AVASTIN [Suspect]
     Active Substance: BEVACIZUMAB
     Route: 042
  7. IRINOTECAN HYDROCHLORIDE. [Suspect]
     Active Substance: IRINOTECAN HYDROCHLORIDE
     Indication: PRODUCT USED FOR UNKNOWN INDICATION
     Route: 042
  8. HYDROMORPH CONTIN [Concomitant]
     Active Substance: HYDROMORPHONE
     Route: 065
  9. LEUCOVORIN [FOLINIC ACID] [Concomitant]
     Active Substance: LEUCOVORIN

REACTIONS (5)
  - Reading disorder [Not Recovered/Not Resolved]
  - Dysgraphia [Not Recovered/Not Resolved]
  - Memory impairment [Not Recovered/Not Resolved]
  - Cognitive disorder [Not Recovered/Not Resolved]
  - Hemiplegia [Not Recovered/Not Resolved]
